FAERS Safety Report 20114097 (Version 2)
Quarter: 2024Q1

REPORT INFORMATION
  Report Type: Spontaneous
  Country: TH (occurrence: None)
  Receive Date: 20211125
  Receipt Date: 20240115
  Transmission Date: 20240409
  Serious: Yes (Other)
  Sender: FDA-Public Use
  Company Number: 2021A832338

PATIENT
  Age: 38 Week
  Sex: Female
  Weight: 2.8 kg

DRUGS (115)
  1. PROPOFOL [Suspect]
     Active Substance: PROPOFOL
     Indication: Sedative therapy
     Dosage: 120.0MG UNKNOWN
     Route: 064
  2. QUETIAPINE [Suspect]
     Active Substance: QUETIAPINE
     Indication: Bipolar I disorder
     Dosage: 200 MG PER DAY (HALF TABLET)
     Route: 064
  3. QUETIAPINE [Suspect]
     Active Substance: QUETIAPINE
     Indication: Anxiety
     Dosage: 200 MG PER DAY (HALF TABLET)
     Route: 064
  4. QUETIAPINE [Suspect]
     Active Substance: QUETIAPINE
     Indication: Irritability
     Dosage: 200 MG PER DAY (HALF TABLET)
     Route: 064
  5. QUETIAPINE [Suspect]
     Active Substance: QUETIAPINE
     Indication: Bipolar I disorder
     Dosage: 50 MG
     Route: 064
  6. QUETIAPINE [Suspect]
     Active Substance: QUETIAPINE
     Indication: Anxiety
     Dosage: 50 MG
     Route: 064
  7. QUETIAPINE [Suspect]
     Active Substance: QUETIAPINE
     Indication: Irritability
     Dosage: 50 MG
     Route: 064
  8. QUETIAPINE [Suspect]
     Active Substance: QUETIAPINE
     Indication: Bipolar I disorder
     Dosage: 400 MG PER DAY
     Route: 064
  9. QUETIAPINE [Suspect]
     Active Substance: QUETIAPINE
     Indication: Anxiety
     Dosage: 400 MG PER DAY
     Route: 064
  10. QUETIAPINE [Suspect]
     Active Substance: QUETIAPINE
     Indication: Irritability
     Dosage: 400 MG PER DAY
     Route: 064
  11. ACETAMINOPHEN [Suspect]
     Active Substance: ACETAMINOPHEN
     Indication: Headache
     Dosage: 500 MG
     Route: 064
  12. LITHIUM CARBONATE [Suspect]
     Active Substance: LITHIUM CARBONATE
     Indication: Irritability
     Dosage: UNK
     Route: 064
  13. LITHIUM CARBONATE [Suspect]
     Active Substance: LITHIUM CARBONATE
     Indication: Affect lability
     Dosage: UNK
     Route: 064
  14. LITHIUM CARBONATE [Suspect]
     Active Substance: LITHIUM CARBONATE
     Indication: Aggression
     Dosage: UNK
     Route: 064
  15. LITHIUM CARBONATE [Suspect]
     Active Substance: LITHIUM CARBONATE
     Indication: Soliloquy
     Dosage: UNK
     Route: 064
  16. LITHIUM CARBONATE [Suspect]
     Active Substance: LITHIUM CARBONATE
     Indication: Mental disorder
     Dosage: UNK
     Route: 064
  17. LITHIUM CARBONATE [Suspect]
     Active Substance: LITHIUM CARBONATE
     Indication: Irritability
     Dosage: UNK
     Route: 064
  18. LITHIUM CARBONATE [Suspect]
     Active Substance: LITHIUM CARBONATE
     Indication: Affect lability
     Dosage: UNK
     Route: 064
  19. LITHIUM CARBONATE [Suspect]
     Active Substance: LITHIUM CARBONATE
     Indication: Aggression
     Dosage: UNK
     Route: 064
  20. LITHIUM CARBONATE [Suspect]
     Active Substance: LITHIUM CARBONATE
     Indication: Soliloquy
     Dosage: UNK
     Route: 064
  21. LITHIUM CARBONATE [Suspect]
     Active Substance: LITHIUM CARBONATE
     Indication: Mental disorder
     Dosage: UNK
     Route: 064
  22. LITHIUM CARBONATE [Suspect]
     Active Substance: LITHIUM CARBONATE
     Indication: Irritability
     Dosage: UNK
     Route: 064
  23. LITHIUM CARBONATE [Suspect]
     Active Substance: LITHIUM CARBONATE
     Indication: Affect lability
     Dosage: UNK
     Route: 064
  24. LITHIUM CARBONATE [Suspect]
     Active Substance: LITHIUM CARBONATE
     Indication: Aggression
     Dosage: UNK
     Route: 064
  25. LITHIUM CARBONATE [Suspect]
     Active Substance: LITHIUM CARBONATE
     Indication: Soliloquy
     Dosage: UNK
     Route: 064
  26. LITHIUM CARBONATE [Suspect]
     Active Substance: LITHIUM CARBONATE
     Indication: Mental disorder
     Dosage: UNK
     Route: 064
  27. LITHIUM CARBONATE [Suspect]
     Active Substance: LITHIUM CARBONATE
     Indication: Irritability
     Dosage: UNK
     Route: 064
  28. LITHIUM CARBONATE [Suspect]
     Active Substance: LITHIUM CARBONATE
     Indication: Affect lability
     Dosage: UNK
     Route: 064
  29. LITHIUM CARBONATE [Suspect]
     Active Substance: LITHIUM CARBONATE
     Indication: Aggression
     Dosage: UNK
     Route: 064
  30. LITHIUM CARBONATE [Suspect]
     Active Substance: LITHIUM CARBONATE
     Indication: Soliloquy
     Dosage: UNK
     Route: 064
  31. LITHIUM CARBONATE [Suspect]
     Active Substance: LITHIUM CARBONATE
     Indication: Mental disorder
     Dosage: UNK
     Route: 064
  32. LITHIUM CARBONATE [Suspect]
     Active Substance: LITHIUM CARBONATE
     Indication: Irritability
     Dosage: UNK
     Route: 064
  33. LITHIUM CARBONATE [Suspect]
     Active Substance: LITHIUM CARBONATE
     Indication: Affect lability
     Dosage: UNK
     Route: 064
  34. LITHIUM CARBONATE [Suspect]
     Active Substance: LITHIUM CARBONATE
     Indication: Aggression
     Dosage: UNK
     Route: 064
  35. LITHIUM CARBONATE [Suspect]
     Active Substance: LITHIUM CARBONATE
     Indication: Soliloquy
     Dosage: UNK
     Route: 064
  36. LITHIUM CARBONATE [Suspect]
     Active Substance: LITHIUM CARBONATE
     Indication: Mental disorder
     Dosage: UNK
     Route: 064
  37. SUCCINYLCHOLINE [Suspect]
     Active Substance: SUCCINYLCHOLINE
     Indication: Sedative therapy
     Dosage: 100.0MG UNKNOWN
     Route: 064
  38. SUCCINYLCHOLINE [Suspect]
     Active Substance: SUCCINYLCHOLINE
     Indication: Muscle relaxant therapy
     Dosage: 100.0MG UNKNOWN
     Route: 064
  39. SUCCINYLCHOLINE [Suspect]
     Active Substance: SUCCINYLCHOLINE
     Indication: Sedative therapy
     Dosage: 75.0MG UNKNOWN
     Route: 064
  40. SUCCINYLCHOLINE [Suspect]
     Active Substance: SUCCINYLCHOLINE
     Indication: Muscle relaxant therapy
     Dosage: 75.0MG UNKNOWN
     Route: 064
  41. ATROPINE [Suspect]
     Active Substance: ATROPINE\ATROPINE SULFATE
     Indication: Secretion discharge
     Dosage: 0.4MG UNKNOWN
     Route: 064
  42. FLUPENTIXOL [Suspect]
     Active Substance: FLUPENTIXOL
     Indication: Irritability
     Dosage: UNK
     Route: 064
  43. FLUPENTIXOL [Suspect]
     Active Substance: FLUPENTIXOL
     Indication: Affect lability
     Dosage: UNK
     Route: 064
  44. FLUPENTIXOL [Suspect]
     Active Substance: FLUPENTIXOL
     Indication: Aggression
     Dosage: UNK
     Route: 064
  45. FLUPENTIXOL [Suspect]
     Active Substance: FLUPENTIXOL
     Indication: Soliloquy
     Dosage: UNK
     Route: 064
  46. FLUPENTIXOL [Suspect]
     Active Substance: FLUPENTIXOL
     Indication: Mental disorder
     Dosage: UNK
     Route: 064
  47. FLUPENTIXOL [Suspect]
     Active Substance: FLUPENTIXOL
     Indication: Irritability
     Dosage: UNK
     Route: 064
  48. FLUPENTIXOL [Suspect]
     Active Substance: FLUPENTIXOL
     Indication: Affect lability
     Dosage: UNK
     Route: 064
  49. FLUPENTIXOL [Suspect]
     Active Substance: FLUPENTIXOL
     Indication: Aggression
     Dosage: UNK
     Route: 064
  50. FLUPENTIXOL [Suspect]
     Active Substance: FLUPENTIXOL
     Indication: Soliloquy
     Dosage: UNK
     Route: 064
  51. FLUPENTIXOL [Suspect]
     Active Substance: FLUPENTIXOL
     Indication: Mental disorder
     Dosage: UNK
     Route: 064
  52. FLUPENTIXOL [Suspect]
     Active Substance: FLUPENTIXOL
     Indication: Irritability
     Dosage: UNK
     Route: 064
  53. FLUPENTIXOL [Suspect]
     Active Substance: FLUPENTIXOL
     Indication: Affect lability
     Dosage: UNK
     Route: 064
  54. FLUPENTIXOL [Suspect]
     Active Substance: FLUPENTIXOL
     Indication: Aggression
     Dosage: UNK
     Route: 064
  55. FLUPENTIXOL [Suspect]
     Active Substance: FLUPENTIXOL
     Indication: Soliloquy
     Dosage: UNK
     Route: 064
  56. FLUPENTIXOL [Suspect]
     Active Substance: FLUPENTIXOL
     Indication: Mental disorder
     Dosage: UNK
     Route: 064
  57. FLUPENTIXOL [Suspect]
     Active Substance: FLUPENTIXOL
     Indication: Irritability
     Dosage: UNK
     Route: 064
  58. FLUPENTIXOL [Suspect]
     Active Substance: FLUPENTIXOL
     Indication: Affect lability
     Dosage: UNK
     Route: 064
  59. FLUPENTIXOL [Suspect]
     Active Substance: FLUPENTIXOL
     Indication: Aggression
     Dosage: UNK
     Route: 064
  60. FLUPENTIXOL [Suspect]
     Active Substance: FLUPENTIXOL
     Indication: Soliloquy
     Dosage: UNK
     Route: 064
  61. FLUPENTIXOL [Suspect]
     Active Substance: FLUPENTIXOL
     Indication: Mental disorder
     Dosage: UNK
     Route: 064
  62. FLUPENTIXOL [Suspect]
     Active Substance: FLUPENTIXOL
     Indication: Irritability
     Dosage: UNK
     Route: 064
  63. FLUPENTIXOL [Suspect]
     Active Substance: FLUPENTIXOL
     Indication: Affect lability
     Dosage: UNK
     Route: 064
  64. FLUPENTIXOL [Suspect]
     Active Substance: FLUPENTIXOL
     Indication: Aggression
     Dosage: UNK
     Route: 064
  65. FLUPENTIXOL [Suspect]
     Active Substance: FLUPENTIXOL
     Indication: Soliloquy
     Dosage: UNK
     Route: 064
  66. FLUPENTIXOL [Suspect]
     Active Substance: FLUPENTIXOL
     Indication: Mental disorder
     Dosage: UNK
     Route: 064
  67. HALOPERIDOL [Suspect]
     Active Substance: HALOPERIDOL
     Indication: Condition aggravated
     Dosage: 5 MG
     Route: 064
  68. HALOPERIDOL [Suspect]
     Active Substance: HALOPERIDOL
     Indication: Hallucination, auditory
     Dosage: 5 MG
     Route: 064
  69. HALOPERIDOL [Suspect]
     Active Substance: HALOPERIDOL
     Indication: Agitation
     Dosage: 5 MG
     Route: 064
  70. HALOPERIDOL [Suspect]
     Active Substance: HALOPERIDOL
     Indication: Insomnia
     Dosage: 5 MG
     Route: 064
  71. HALOPERIDOL [Suspect]
     Active Substance: HALOPERIDOL
     Indication: Aggression
     Dosage: 5 MG
     Route: 064
  72. HALOPERIDOL [Suspect]
     Active Substance: HALOPERIDOL
     Indication: Shoplifting
     Dosage: 5 MG
     Route: 064
  73. HALOPERIDOL [Suspect]
     Active Substance: HALOPERIDOL
     Indication: Condition aggravated
     Dosage: 10 MG PER DAY
     Route: 064
  74. HALOPERIDOL [Suspect]
     Active Substance: HALOPERIDOL
     Indication: Hallucination, auditory
     Dosage: 10 MG PER DAY
     Route: 064
  75. HALOPERIDOL [Suspect]
     Active Substance: HALOPERIDOL
     Indication: Agitation
     Dosage: 10 MG PER DAY
     Route: 064
  76. HALOPERIDOL [Suspect]
     Active Substance: HALOPERIDOL
     Indication: Insomnia
     Dosage: 10 MG PER DAY
     Route: 064
  77. HALOPERIDOL [Suspect]
     Active Substance: HALOPERIDOL
     Indication: Aggression
     Dosage: 10 MG PER DAY
     Route: 064
  78. HALOPERIDOL [Suspect]
     Active Substance: HALOPERIDOL
     Indication: Shoplifting
     Dosage: 10 MG PER DAY
     Route: 064
  79. HALOPERIDOL [Suspect]
     Active Substance: HALOPERIDOL
     Indication: Condition aggravated
     Dosage: UNK
     Route: 064
  80. HALOPERIDOL [Suspect]
     Active Substance: HALOPERIDOL
     Indication: Hallucination, auditory
     Dosage: UNK
     Route: 064
  81. HALOPERIDOL [Suspect]
     Active Substance: HALOPERIDOL
     Indication: Agitation
     Dosage: UNK
     Route: 064
  82. HALOPERIDOL [Suspect]
     Active Substance: HALOPERIDOL
     Indication: Insomnia
     Dosage: UNK
     Route: 064
  83. HALOPERIDOL [Suspect]
     Active Substance: HALOPERIDOL
     Indication: Aggression
     Dosage: UNK
     Route: 064
  84. HALOPERIDOL [Suspect]
     Active Substance: HALOPERIDOL
     Indication: Shoplifting
     Dosage: UNK
     Route: 064
  85. HALOPERIDOL [Suspect]
     Active Substance: HALOPERIDOL
     Indication: Condition aggravated
     Dosage: UNK
     Route: 064
  86. HALOPERIDOL [Suspect]
     Active Substance: HALOPERIDOL
     Indication: Hallucination, auditory
     Dosage: UNK
     Route: 064
  87. HALOPERIDOL [Suspect]
     Active Substance: HALOPERIDOL
     Indication: Agitation
     Dosage: UNK
     Route: 064
  88. HALOPERIDOL [Suspect]
     Active Substance: HALOPERIDOL
     Indication: Insomnia
     Dosage: UNK
     Route: 064
  89. HALOPERIDOL [Suspect]
     Active Substance: HALOPERIDOL
     Indication: Aggression
     Dosage: UNK
     Route: 064
  90. HALOPERIDOL [Suspect]
     Active Substance: HALOPERIDOL
     Indication: Shoplifting
     Dosage: UNK
     Route: 064
  91. HALOPERIDOL [Suspect]
     Active Substance: HALOPERIDOL
     Indication: Condition aggravated
     Dosage: UNK
     Route: 064
  92. HALOPERIDOL [Suspect]
     Active Substance: HALOPERIDOL
     Indication: Hallucination, auditory
     Dosage: UNK
     Route: 064
  93. HALOPERIDOL [Suspect]
     Active Substance: HALOPERIDOL
     Indication: Agitation
     Dosage: UNK
     Route: 064
  94. HALOPERIDOL [Suspect]
     Active Substance: HALOPERIDOL
     Indication: Insomnia
     Dosage: UNK
     Route: 064
  95. HALOPERIDOL [Suspect]
     Active Substance: HALOPERIDOL
     Indication: Aggression
     Dosage: UNK
     Route: 064
  96. HALOPERIDOL [Suspect]
     Active Substance: HALOPERIDOL
     Indication: Shoplifting
     Dosage: UNK
     Route: 064
  97. HALOPERIDOL [Suspect]
     Active Substance: HALOPERIDOL
     Indication: Condition aggravated
     Dosage: UNK
     Route: 064
  98. HALOPERIDOL [Suspect]
     Active Substance: HALOPERIDOL
     Indication: Hallucination, auditory
     Dosage: UNK
     Route: 064
  99. HALOPERIDOL [Suspect]
     Active Substance: HALOPERIDOL
     Indication: Agitation
     Dosage: UNK
     Route: 064
  100. HALOPERIDOL [Suspect]
     Active Substance: HALOPERIDOL
     Indication: Insomnia
     Dosage: UNK
     Route: 064
  101. HALOPERIDOL [Suspect]
     Active Substance: HALOPERIDOL
     Indication: Aggression
     Dosage: UNK
     Route: 064
  102. HALOPERIDOL [Suspect]
     Active Substance: HALOPERIDOL
     Indication: Shoplifting
     Dosage: UNK
     Route: 064
  103. RISPERIDONE [Suspect]
     Active Substance: RISPERIDONE
     Indication: Bipolar I disorder
     Route: 064
  104. FERROUS FUMARATE\FOLIC ACID\IODINE [Suspect]
     Active Substance: FERROUS FUMARATE\FOLIC ACID\IODINE
     Indication: Nutritional supplementation
     Dosage: 150 MG
     Route: 064
  105. CALCIUM CARBONATE [Suspect]
     Active Substance: CALCIUM CARBONATE
     Indication: Nutritional supplementation
     Dosage: 1 G
     Route: 064
  106. THIOPENTAL [Suspect]
     Active Substance: THIOPENTAL
     Indication: Seizure
     Dosage: 50 MG
     Route: 064
  107. THIOPENTAL [Suspect]
     Active Substance: THIOPENTAL
     Indication: Sedative therapy
     Dosage: 50 MG
     Route: 064
  108. THIOPENTAL [Suspect]
     Active Substance: THIOPENTAL
     Indication: Muscle relaxant therapy
     Dosage: 50 MG
     Route: 064
  109. THIOPENTAL [Suspect]
     Active Substance: THIOPENTAL
     Indication: Seizure
     Dosage: 250 MG
     Route: 064
  110. THIOPENTAL [Suspect]
     Active Substance: THIOPENTAL
     Indication: Sedative therapy
     Dosage: 250 MG
     Route: 064
  111. THIOPENTAL [Suspect]
     Active Substance: THIOPENTAL
     Indication: Muscle relaxant therapy
     Dosage: 250 MG
     Route: 064
  112. THIOPENTAL [Suspect]
     Active Substance: THIOPENTAL
     Indication: Seizure
     Dosage: UNK
     Route: 064
  113. THIOPENTAL [Suspect]
     Active Substance: THIOPENTAL
     Indication: Sedative therapy
     Dosage: UNK
     Route: 064
  114. THIOPENTAL [Suspect]
     Active Substance: THIOPENTAL
     Indication: Muscle relaxant therapy
     Dosage: UNK
     Route: 064
  115. LACTATED RINGERS SOLUTION [Suspect]
     Active Substance: CALCIUM CHLORIDE\POTASSIUM CHLORIDE\SODIUM CHLORIDE\SODIUM LACTATE
     Indication: Product used for unknown indication
     Dosage: 1 L
     Route: 064

REACTIONS (2)
  - Foetal exposure during pregnancy [Unknown]
  - Bradycardia foetal [Unknown]
